FAERS Safety Report 20580906 (Version 5)
Quarter: 2023Q2

REPORT INFORMATION
  Report Type: Spontaneous
  Country: US (occurrence: US)
  Receive Date: 20220311
  Receipt Date: 20230609
  Transmission Date: 20230721
  Serious: Yes (Hospitalization, Disabling, Other)
  Sender: FDA-Public Use
  Company Number: US-ORGANON-O2203USA000850

PATIENT
  Sex: Male
  Weight: 78.6 kg

DRUGS (2)
  1. SINGULAIR [Suspect]
     Active Substance: MONTELUKAST SODIUM
     Dosage: UNK
     Route: 048
     Dates: start: 2000, end: 2009
  2. SINGULAIR [Suspect]
     Active Substance: MONTELUKAST SODIUM
     Dosage: UNK
     Route: 048
     Dates: start: 1998

REACTIONS (8)
  - Neuropsychiatric symptoms [Not Recovered/Not Resolved]
  - Social anxiety disorder [Recovering/Resolving]
  - Major depression [Recovering/Resolving]
  - Suicidal behaviour [Recovering/Resolving]
  - Self-injurious ideation [Not Recovered/Not Resolved]
  - Anxiety [Not Recovered/Not Resolved]
  - Schizophrenia [Unknown]
  - Oppositional defiant disorder [Unknown]

NARRATIVE: CASE EVENT DATE: 20090101
